FAERS Safety Report 19059044 (Version 1)
Quarter: 2021Q1

REPORT INFORMATION
  Report Type: Spontaneous
  Country: GB (occurrence: GB)
  Receive Date: 20210325
  Receipt Date: 20210325
  Transmission Date: 20210420
  Serious: Yes (Other)
  Sender: FDA-Public Use
  Company Number: GB-ASTRAZENECA-2021A187382

PATIENT
  Age: 56 Year
  Sex: Female

DRUGS (1)
  1. QUETIAPINE. [Suspect]
     Active Substance: QUETIAPINE
     Indication: ILL-DEFINED DISORDER
     Dosage: 25.0MG UNKNOWN
     Route: 048
     Dates: start: 20210222, end: 20210226

REACTIONS (13)
  - Dry mouth [Recovered/Resolved]
  - Tremor [Unknown]
  - Dry throat [Recovered/Resolved]
  - Agitation [Unknown]
  - Myalgia [Unknown]
  - Vision blurred [Unknown]
  - Muscle spasms [Unknown]
  - Muscle contractions involuntary [Unknown]
  - Intentional dose omission [Unknown]
  - Nervousness [Unknown]
  - Headache [Unknown]
  - Heart rate increased [Recovered/Resolved]
  - Restlessness [Unknown]

NARRATIVE: CASE EVENT DATE: 20210222
